FAERS Safety Report 25025448 (Version 1)
Quarter: 2025Q1

REPORT INFORMATION
  Report Type: Spontaneous
  Country: VN (occurrence: VN)
  Receive Date: 20250228
  Receipt Date: 20250228
  Transmission Date: 20250409
  Serious: Yes (Life-Threatening, Hospitalization, Other)
  Sender: ASTELLAS
  Company Number: VN-ASTELLAS-2025-AER-010869

PATIENT
  Sex: Male

DRUGS (4)
  1. TACROLIMUS [Suspect]
     Active Substance: TACROLIMUS
     Indication: Renal transplant
     Route: 065
  2. PREDNISOLONE [Concomitant]
     Active Substance: PREDNISOLONE
     Indication: Renal transplant
     Route: 065
  3. MYCOPHENOLATE MOFETIL [Concomitant]
     Active Substance: MYCOPHENOLATE MOFETIL
     Indication: Renal transplant
     Route: 065
     Dates: end: 202410
  4. PREDNISONE [Concomitant]
     Active Substance: PREDNISONE
     Indication: Product used for unknown indication
     Route: 065

REACTIONS (25)
  - Respiratory failure [Not Recovered/Not Resolved]
  - Pneumonia [Unknown]
  - Renal failure [Unknown]
  - Pancytopenia [Unknown]
  - Bacterial infection [Recovered/Resolved]
  - Pneumonia pseudomonal [Recovered/Resolved]
  - Staphylococcal infection [Recovered/Resolved]
  - Candida infection [Recovered/Resolved]
  - Leukopenia [Unknown]
  - Haemophagocytic lymphohistiocytosis [Unknown]
  - Anti-neutrophil cytoplasmic antibody positive vasculitis [Unknown]
  - Pulmonary tuberculosis [Unknown]
  - Tuberculosis of genitourinary system [Unknown]
  - Pneumonia klebsiella [Recovered/Resolved]
  - Thrombocytopenia [Unknown]
  - Anaemia [Unknown]
  - Pseudomonas infection [Recovered/Resolved]
  - Blood creatinine increased [Unknown]
  - Gastrointestinal haemorrhage [Unknown]
  - COVID-19 [Unknown]
  - Pharyngitis [Unknown]
  - Aspartate aminotransferase increased [Unknown]
  - Alanine aminotransferase increased [Unknown]
  - Pyrexia [Recovered/Resolved]
  - Oedema [Unknown]

NARRATIVE: CASE EVENT DATE: 20210901
